FAERS Safety Report 26180252 (Version 1)
Quarter: 2025Q4

REPORT INFORMATION
  Report Type: Other
  Country: GB (occurrence: GB)
  Receive Date: 20251219
  Receipt Date: 20251219
  Transmission Date: 20260118
  Serious: Yes (Hospitalization)
  Sender: MERCK KGAA
  Company Number: GB-Merck Healthcare KGaA-2025064187

PATIENT
  Age: 76 Year
  Sex: Male

DRUGS (1)
  1. AVELUMAB [Suspect]
     Active Substance: AVELUMAB
     Indication: Neuroendocrine carcinoma of the skin
     Dates: start: 202305

REACTIONS (1)
  - Miller Fisher syndrome [Recovered/Resolved]
